FAERS Safety Report 5877339-6 (Version None)
Quarter: 2008Q3

REPORT INFORMATION
  Report Type: 
  Country: None (occurrence: None)
  Receive Date: 20080910
  Receipt Date: 20080829
  Transmission Date: 20090109
  Serious: Yes (Hospitalization)
  Sender: FDA-Public Use
  Company Number: JP-AMGEN-US300376

PATIENT
  Sex: Female
  Weight: 52 kg

DRUGS (9)
  1. ENBREL [Suspect]
     Indication: RHEUMATOID ARTHRITIS
     Route: 058
     Dates: start: 20070701, end: 20080812
  2. LOXONIN [Concomitant]
     Indication: RHEUMATOID ARTHRITIS
     Dosage: UNKNOWN
     Route: 048
     Dates: start: 20060831, end: 20080801
  3. THYRADIN [Concomitant]
     Indication: THYROID DISORDER
     Dosage: UNKNOWN
     Route: 048
     Dates: start: 20060831, end: 20080801
  4. DEPAS [Concomitant]
     Dosage: UNKNOWN
     Route: 048
  5. FERROMIA [Concomitant]
     Indication: IRON DEFICIENCY ANAEMIA
     Dosage: UNKNOWN
     Route: 048
     Dates: start: 20060831, end: 20080401
  6. TRYPTANOL [Concomitant]
     Indication: DEPRESSION
     Dosage: UNKNOWN
     Route: 048
     Dates: start: 20060831, end: 20080401
  7. SALIGREN [Concomitant]
     Indication: SJOGREN'S SYNDROME
     Dosage: UNKNOWN
     Route: 048
     Dates: start: 20060831, end: 20080801
  8. PREDONINE [Concomitant]
     Dosage: UNKNOWN
     Route: 048
  9. JUVELA [Concomitant]
     Indication: PERIPHERAL CIRCULATORY FAILURE
     Dosage: UNKNOWN
     Route: 048
     Dates: start: 20060831, end: 20080401

REACTIONS (2)
  - FALL [None]
  - PITUITARY TUMOUR [None]
